FAERS Safety Report 7569653-3 (Version None)
Quarter: 2011Q2

REPORT INFORMATION
  Report Type: 
  Country: None (occurrence: None)
  Receive Date: 20110525
  Receipt Date: 20110330
  Transmission Date: 20111010
  Serious: No
  Sender: FDA-Public Use
  Company Number: 323096

PATIENT
  Age: 84 Year
  Sex: Male

DRUGS (3)
  1. GLIMEPIRIDE [Concomitant]
  2. VICTOZA [Suspect]
     Indication: TYPE 2 DIABETES MELLITUS
     Dosage: SUBCUTANEOUS
     Route: 058
  3. ACTOS [Concomitant]

REACTIONS (1)
  - BLOOD GLUCOSE FLUCTUATION [None]
